FAERS Safety Report 9450003 (Version 2)
Quarter: 2013Q3

REPORT INFORMATION
  Report Type: Spontaneous
  Country: US (occurrence: US)
  Receive Date: 20130809
  Receipt Date: 20130909
  Transmission Date: 20140515
  Serious: Yes (Life-Threatening, Other)
  Sender: FDA-Public Use
  Company Number: US-PFIZER INC-2013230655

PATIENT
  Age: 73 Year
  Sex: Male
  Weight: 74.1 kg

DRUGS (4)
  1. ZOSYN [Suspect]
     Indication: APPENDICITIS
     Dosage: 3.375 G, 4X/DAY
     Route: 042
     Dates: start: 20130805, end: 20130806
  2. ZOSYN [Suspect]
     Indication: PYREXIA
  3. ZOSYN [Suspect]
     Indication: ABDOMINAL PAIN
  4. ONDANSETRON [Concomitant]
     Dosage: 4 MG, UNK
     Route: 042
     Dates: start: 20130803

REACTIONS (3)
  - Long QT syndrome [Recovered/Resolved]
  - Palpitations [Recovered/Resolved]
  - Electrocardiogram T wave inversion [Recovered/Resolved]
